FAERS Safety Report 10045953 (Version 1)
Quarter: 2014Q1

REPORT INFORMATION
  Report Type: Spontaneous
  Country: FR (occurrence: FR)
  Receive Date: 20140330
  Receipt Date: 20140330
  Transmission Date: 20141002
  Serious: Yes (Hospitalization)
  Sender: FDA-Public Use
  Company Number: FR-TEVA-469812ISR

PATIENT
  Age: 16 Year
  Sex: Female

DRUGS (4)
  1. METHOTREXATE TEVA [Suspect]
     Indication: OSTEOSARCOMA
     Dosage: 27 GRAM DAILY;
     Route: 042
     Dates: start: 20131018, end: 20131018
  2. METHOTREXATE TEVA [Suspect]
     Route: 042
     Dates: start: 20131130, end: 20131130
  3. METHOTREXATE TEVA [Suspect]
     Dosage: 24 GRAM DAILY;
     Route: 042
     Dates: start: 20140116, end: 20140116
  4. METHOTREXATE TEVA [Suspect]
     Dosage: 22 GRAM DAILY;
     Route: 042
     Dates: start: 20140222, end: 20140222

REACTIONS (6)
  - Hepatocellular injury [Not Recovered/Not Resolved]
  - Gamma-glutamyltransferase increased [Recovered/Resolved]
  - Proteinuria [Unknown]
  - Prothrombin time ratio decreased [Unknown]
  - Coagulation factor decreased [Unknown]
  - Hypokalaemia [Unknown]
